FAERS Safety Report 9035608 (Version 1)
Quarter: 2013Q1

REPORT INFORMATION
  Report Type: Report from Study
  Country: US (occurrence: US)
  Receive Date: 20130129
  Receipt Date: 20130129
  Transmission Date: 20140127
  Serious: No
  Sender: FDA-Public Use
  Company Number: US-ABBOTT-12P-163-0914158-00

PATIENT
  Age: 39 Year
  Sex: Female

DRUGS (8)
  1. HUMIRA 40 MG/0.8 ML PEN [Suspect]
     Indication: RHEUMATOID ARTHRITIS
     Dates: start: 201201
  2. METHOTREXATE [Concomitant]
     Indication: RHEUMATOID ARTHRITIS
     Dosage: 8 PILLS WEEKLY
  3. TEGRETOL [Concomitant]
     Indication: BIPOLAR DISORDER
     Dosage: 200MG DAILY
  4. LAMICTAL [Concomitant]
     Indication: BIPOLAR DISORDER
     Dosage: 100MG DAILY
  5. SEROQUEL [Concomitant]
     Indication: BIPOLAR DISORDER
     Dosage: 300MG DAILY
  6. LORTAB [Concomitant]
     Indication: PAIN
     Dosage: UP TO 3 DAILY AS NEEDED
  7. ANTIBIOTIC [Concomitant]
     Indication: LASER THERAPY
  8. ANTIBIOTIC [Concomitant]
     Indication: PUSTULAR PSORIASIS

REACTIONS (7)
  - Depressed mood [Not Recovered/Not Resolved]
  - Injection site urticaria [Unknown]
  - Fatigue [Unknown]
  - Nausea [Unknown]
  - Decreased appetite [Unknown]
  - Influenza [Unknown]
  - Depressed mood [Unknown]
